FAERS Safety Report 5038501-8 (Version None)
Quarter: 2006Q2

REPORT INFORMATION
  Report Type: 
  Country: None (occurrence: None)
  Receive Date: 20060626
  Receipt Date: 20060626
  Transmission Date: 20061013
  Serious: Yes (Other)
  Sender: FDA-Public Use
  Company Number: None

PATIENT
  Age: 51 Year
  Sex: Male
  Weight: 90.7194 kg

DRUGS (1)
  1. REQUIP [Suspect]
     Indication: PARKINSON'S DISEASE
     Dosage: 1 TABLET EVERY 4 HOURS PO
     Route: 048

REACTIONS (4)
  - ABNORMAL BEHAVIOUR [None]
  - HIGH RISK SEXUAL BEHAVIOUR [None]
  - LIBIDO INCREASED [None]
  - PROMISCUITY [None]
